FAERS Safety Report 24728642 (Version 1)
Quarter: 2024Q4

REPORT INFORMATION
  Report Type: Spontaneous
  Country: CN (occurrence: CN)
  Receive Date: 20241212
  Receipt Date: 20241212
  Transmission Date: 20250115
  Serious: Yes (Hospitalization)
  Sender: ELI LILLY AND COMPANY
  Company Number: CN-ELI_LILLY_AND_COMPANY-CN202412006386

PATIENT
  Sex: Female

DRUGS (1)
  1. OLUMIANT [Suspect]
     Active Substance: BARICITINIB
     Indication: Alopecia areata
     Dosage: 2 TABLETS OF 2 MG ONCE A DAY
     Route: 048
     Dates: start: 20241203, end: 20241208

REACTIONS (1)
  - Cerebral thrombosis [Unknown]

NARRATIVE: CASE EVENT DATE: 20241208
